FAERS Safety Report 16361330 (Version 1)
Quarter: 2019Q3

REPORT INFORMATION
  Report Type: Spontaneous
  Country: US (occurrence: US)
  Receive Date: 20190524
  Receipt Date: 20190524
  Transmission Date: 20191004
  Serious: Yes (Other)
  Sender: FDA-Public Use
  Company Number: None

PATIENT
  Age: 55 Year
  Sex: Female
  Weight: 126 kg

DRUGS (5)
  1. MINERAL OIL. [Concomitant]
     Active Substance: MINERAL OIL
  2. OLANZAPINE. [Concomitant]
     Active Substance: OLANZAPINE
  3. INVEGA [Suspect]
     Active Substance: PALIPERIDONE
     Indication: INJECTION
     Dosage: ?          OTHER FREQUENCY:1 MONTH INJECTION;OTHER ROUTE:INJECTION?
  4. VITAMINS B-COMPLEX, [Concomitant]
  5. IBUPROFEN. [Concomitant]
     Active Substance: IBUPROFEN

REACTIONS (3)
  - Discomfort [None]
  - Myocardial infarction [None]
  - Cerebrovascular accident [None]

NARRATIVE: CASE EVENT DATE: 20180131
